FAERS Safety Report 8889329 (Version 1)
Quarter: 2012Q4

REPORT INFORMATION
  Report Type: Spontaneous
  Country: US (occurrence: None)
  Receive Date: 20121101
  Receipt Date: 20121101
  Transmission Date: 20130627
  Serious: Yes (Other)
  Sender: FDA-Public Use
  Company Number: None

PATIENT
  Sex: Male

DRUGS (1)
  1. ADDERALL [Suspect]
     Indication: ADHD
     Dosage: 40 mg QAM PO
     Route: 048
     Dates: start: 20121026, end: 20121030

REACTIONS (7)
  - Aggression [None]
  - Impulsive behaviour [None]
  - Physical assault [None]
  - Irritability [None]
  - Emotional disorder [None]
  - Crying [None]
  - Abnormal behaviour [None]
